FAERS Safety Report 6056022-0 (Version None)
Quarter: 2009Q1

REPORT INFORMATION
  Report Type: 
  Country: None (occurrence: None)
  Receive Date: 20090128
  Receipt Date: 20090116
  Transmission Date: 20090719
  Serious: Yes (Other)
  Sender: FDA-Public Use
  Company Number: US-ELI_LILLY_AND_COMPANY-US200810000534

PATIENT
  Sex: Female

DRUGS (4)
  1. FORTEO [Suspect]
     Indication: OSTEOPOROSIS
     Dosage: UNK, UNK
     Dates: start: 20080501, end: 20080101
  2. FORTEO [Suspect]
  3. ANTIHYPERTENSIVES [Concomitant]
     Indication: HYPERTENSION
  4. CALCIUM [Concomitant]

REACTIONS (1)
  - BREAST CANCER [None]
